FAERS Safety Report 9314221 (Version 1)
Quarter: 2013Q2

REPORT INFORMATION
  Report Type: Spontaneous
  Country: US (occurrence: US)
  Receive Date: 20130529
  Receipt Date: 20130529
  Transmission Date: 20140414
  Serious: No
  Sender: FDA-Public Use
  Company Number: US-009507513-1305USA015146

PATIENT
  Age: 59 Year
  Sex: Female

DRUGS (3)
  1. STROMECTOL [Suspect]
     Indication: ACARODERMATITIS
     Dosage: 3 MG, 4 TABLETS
     Route: 048
     Dates: start: 20130415
  2. STROMECTOL [Suspect]
     Dosage: 3 MG, 4 TABLETS
     Route: 048
     Dates: start: 20130507
  3. LORATADINE [Concomitant]
     Dosage: UNK

REACTIONS (3)
  - Diverticulitis [Not Recovered/Not Resolved]
  - Therapeutic response unexpected [Unknown]
  - Off label use [Unknown]
